FAERS Safety Report 10246729 (Version 1)
Quarter: 2014Q1

REPORT INFORMATION
  Report Type: Spontaneous
  Country: US (occurrence: None)
  Receive Date: 20140306
  Receipt Date: 20140306
  Transmission Date: 20141002
  Serious: Yes (Life-Threatening, Disabling)
  Sender: FDA-Public Use
  Company Number: 163-21880-13043020

PATIENT
  Age: 51 Year
  Sex: Male
  Weight: 128.5 kg

DRUGS (17)
  1. REVLIMID (LENALIDOMIDE) (25 MILLIGRAM, CAPSULES) [Suspect]
     Indication: PLASMA CELL MYELOMA
     Route: 048
     Dates: start: 20090902
  2. DEXAMETHASONE (DEXAMETHASONE() [Concomitant]
  3. VELCADE (BORTEZOMIB) [Concomitant]
  4. OXYCODONE (OXYCODONE) [Concomitant]
  5. MS CONTIN (MORPHINE SULFATE) [Concomitant]
  6. MAGNESIUM OXIDE (MAGNESIUM OXIDE) [Concomitant]
  7. POTASSIUM CHLORIDE (POTASSIUM CHLORIDE) [Concomitant]
  8. ACYCLOVIR (ACICLOVIR) [Concomitant]
  9. PRILOSEC (OMEPRAZOLE) [Concomitant]
  10. VITAMIN D3 (COLECALCIFEROL) (CAPSULES) [Concomitant]
  11. FUROSEMIDE (FUROSEMIDE) [Concomitant]
  12. PROMETHAZINE (PROMETHAZINE) [Concomitant]
  13. GLUCOPHAGE (METFORMIN HYDROCHLORIDE) [Concomitant]
  14. METOCLOPRAMIDE HCL (METOCLOPRAMIDE HYDROCHLORIDE) [Concomitant]
  15. NEBIVOLOL (NEBIVOLOL) [Concomitant]
  16. ZOMETA (ZOLEDRONIC ACID) (INJECTION) [Concomitant]
  17. SYNTHROID (LEVOTHYROXINE SODIUM) [Concomitant]

REACTIONS (2)
  - Neutropenia [None]
  - Plasma cell myeloma [None]
